FAERS Safety Report 18574575 (Version 1)
Quarter: 2020Q4

REPORT INFORMATION
  Report Type: Spontaneous
  Country: US (occurrence: US)
  Receive Date: 20201202
  Receipt Date: 20201202
  Transmission Date: 20210114
  Serious: No
  Sender: FDA-Public Use
  Company Number: None

PATIENT
  Age: 69 Year
  Sex: Male
  Weight: 130 kg

DRUGS (1)
  1. METFROMIN (METFORMIN HCL 850MG TAB) [Suspect]
     Active Substance: METFORMIN HYDROCHLORIDE
     Indication: DIABETES MELLITUS
     Dosage: ?          OTHER ROUTE:UNKNOWN?
     Dates: start: 20131105, end: 20201106

REACTIONS (2)
  - Lactic acidosis [None]
  - Toxicity to various agents [None]

NARRATIVE: CASE EVENT DATE: 20201106
